FAERS Safety Report 12631961 (Version 2)
Quarter: 2016Q3

REPORT INFORMATION
  Report Type: Spontaneous
  Country: US (occurrence: US)
  Receive Date: 20160808
  Receipt Date: 20160808
  Transmission Date: 20161109
  Serious: No
  Sender: FDA-Public Use
  Company Number: US-BEH-2016061519

PATIENT
  Sex: Female
  Weight: 78 kg

DRUGS (24)
  1. VITAMIN D [Concomitant]
     Active Substance: CHOLECALCIFEROL
  2. FOLIC ACID. [Concomitant]
     Active Substance: FOLIC ACID
  3. VITAMIN B12 [Concomitant]
     Active Substance: CYANOCOBALAMIN
  4. OYSTER SHELL CALCIUM +D [Concomitant]
  5. ELLURA [Concomitant]
     Active Substance: DIETARY SUPPLEMENT
  6. ZETIA [Concomitant]
     Active Substance: EZETIMIBE
  7. VERAPAMIL [Concomitant]
     Active Substance: VERAPAMIL HYDROCHLORIDE
  8. LISINOPRIL. [Concomitant]
     Active Substance: LISINOPRIL
  9. MULTIVITAMIN [Concomitant]
     Active Substance: VITAMINS
  10. EPIPEN [Concomitant]
     Active Substance: EPINEPHRINE
  11. VAGIFEM [Concomitant]
     Active Substance: ESTRADIOL
  12. GLUCOSAMINE-CHONDROITIN-MSM [Concomitant]
  13. ZEGERID [Concomitant]
     Active Substance: OMEPRAZOLE\SODIUM BICARBONATE
  14. SINGULAIR [Concomitant]
     Active Substance: MONTELUKAST SODIUM
  15. RESTASIS [Concomitant]
     Active Substance: CYCLOSPORINE
  16. HIZENTRA [Suspect]
     Active Substance: HUMAN IMMUNOGLOBULIN G
     Indication: IMMUNODEFICIENCY COMMON VARIABLE
     Route: 058
  17. ACETAMINOPHEN. [Concomitant]
     Active Substance: ACETAMINOPHEN
  18. DIPHENHYDRAMINE. [Concomitant]
     Active Substance: DIPHENHYDRAMINE
  19. LOVAZA [Concomitant]
     Active Substance: OMEGA-3-ACID ETHYL ESTERS
  20. PEPCID [Concomitant]
     Active Substance: FAMOTIDINE
  21. CLARITHROMYCIN. [Concomitant]
     Active Substance: CLARITHROMYCIN
  22. LIDOCAINE. [Concomitant]
     Active Substance: LIDOCAINE
  23. ASPIRIN. [Concomitant]
     Active Substance: ASPIRIN
  24. VITAMIN C [Concomitant]
     Active Substance: ASCORBIC ACID

REACTIONS (4)
  - Pruritus [Unknown]
  - Infusion site rash [Unknown]
  - Back pain [Unknown]
  - Feeling abnormal [Unknown]
